FAERS Safety Report 22390133 (Version 1)
Quarter: 2023Q2

REPORT INFORMATION
  Report Type: Spontaneous
  Country: US (occurrence: US)
  Receive Date: 20230531
  Receipt Date: 20230531
  Transmission Date: 20230722
  Serious: No
  Sender: FDA-Public Use
  Company Number: US-PFIZER INC-202300204204

PATIENT
  Age: 57 Year
  Sex: Male

DRUGS (1)
  1. IBRANCE [Suspect]
     Active Substance: PALBOCICLIB
     Dosage: TAKE 1 TABLET BY MOUTH DAILY FOR 21 DAYS, FOLLOWED BY A 7 DAY REST PERIOD
     Route: 048
     Dates: start: 20230317

REACTIONS (1)
  - Non-alcoholic fatty liver [Unknown]

NARRATIVE: CASE EVENT DATE: 20230101
